FAERS Safety Report 7717672-6 (Version None)
Quarter: 2011Q3

REPORT INFORMATION
  Report Type: 
  Country: None (occurrence: None)
  Receive Date: 20110830
  Receipt Date: 20110830
  Transmission Date: 20111222
  Serious: Yes (Hospitalization)
  Sender: FDA-Public Use
  Company Number: None

PATIENT
  Age: 8 Year
  Sex: Male
  Weight: 32.7 kg

DRUGS (2)
  1. DEXMEDETOMIDINE HYDROCHLORIDE [Suspect]
     Indication: SEDATIVE THERAPY
     Dosage: UNKNOWN
     Route: 041
     Dates: start: 20110828, end: 20110828
  2. DEXMEDETOMIDINE HYDROCHLORIDE [Suspect]
     Indication: NUCLEAR MAGNETIC RESONANCE IMAGING
     Dosage: UNKNOWN
     Route: 041
     Dates: start: 20110828, end: 20110828

REACTIONS (4)
  - SYNCOPE [None]
  - BRADYCARDIA [None]
  - CONVULSION [None]
  - HYPOTENSION [None]
